FAERS Safety Report 4630491-2 (Version None)
Quarter: 2005Q2

REPORT INFORMATION
  Report Type: 
  Country: None (occurrence: None)
  Receive Date: 20050406
  Receipt Date: 20050323
  Transmission Date: 20051028
  Serious: Yes (Hospitalization)
  Sender: FDA-Public Use
  Company Number: USA050393952

PATIENT
  Age: 49 Year
  Sex: Female

DRUGS (6)
  1. FORTEO [Suspect]
     Indication: HYPOCALCAEMIA
     Dates: start: 20050101
  2. OSCAL (CALCIUM CARBONATE) [Concomitant]
  3. MAGNESIUM [Concomitant]
  4. VITAMIN D [Concomitant]
  5. CALCIUM GLUCONATE [Concomitant]
  6. MAGNESIUM [Concomitant]

REACTIONS (4)
  - CHEST PAIN [None]
  - DRUG INEFFECTIVE [None]
  - PAIN [None]
  - TETANY [None]
